FAERS Safety Report 5194232-5 (Version None)
Quarter: 2006Q4

REPORT INFORMATION
  Report Type: 
  Country: None (occurrence: None)
  Receive Date: 20061228
  Receipt Date: 20060531
  Transmission Date: 20070319
  Serious: Yes (Disabling)
  Sender: FDA-Public Use
  Company Number: US-PFIZER INC-2006071293

PATIENT
  Sex: Male
  Weight: 113.4 kg

DRUGS (6)
  1. LIPITOR [Suspect]
     Indication: BLOOD CHOLESTEROL INCREASED
     Route: 048
  2. LISINOPRIL [Concomitant]
  3. ALL OTHER THERAPEUTIC PRODUCTS [Concomitant]
  4. DIGOXIN [Concomitant]
  5. ASPIRIN [Concomitant]
  6. OTHER ANTIHYPERTENSIVES [Concomitant]

REACTIONS (7)
  - BACK PAIN [None]
  - GAIT DISTURBANCE [None]
  - INSOMNIA [None]
  - MUSCLE DISORDER [None]
  - MUSCULAR WEAKNESS [None]
  - MUSCULOSKELETAL STIFFNESS [None]
  - PAIN IN EXTREMITY [None]
